FAERS Safety Report 16809525 (Version 1)
Quarter: 2019Q4

REPORT INFORMATION
  Report Type: Spontaneous
  Country: US (occurrence: US)
  Receive Date: 20190915
  Receipt Date: 20190915
  Transmission Date: 20200122
  Serious: Yes (Disabling)
  Sender: FDA-Public Use
  Company Number: None

PATIENT
  Age: 44 Year
  Sex: Female
  Weight: 69.75 kg

DRUGS (2)
  1. DAILY MULTI VITAMIN [Concomitant]
  2. LARIAM [Suspect]
     Active Substance: MEFLOQUINE HYDROCHLORIDE
     Indication: MALARIA PROPHYLAXIS
     Dosage: ?          QUANTITY:1 TABLET(S);OTHER FREQUENCY:1X/WK;?
     Route: 048

REACTIONS (16)
  - Headache [None]
  - Panic attack [None]
  - Agoraphobia [None]
  - Orthostatic hypotension [None]
  - Dizziness [None]
  - Nausea [None]
  - Tinnitus [None]
  - Hypoglycaemia [None]
  - Vision blurred [None]
  - Anxiety [None]
  - Sleep apnoea syndrome [None]
  - Nightmare [None]
  - Coordination abnormal [None]
  - Hallucination [None]
  - Depression [None]
  - Vertigo [None]

NARRATIVE: CASE EVENT DATE: 19940523
